FAERS Safety Report 8962810 (Version 2)
Quarter: 2013Q1

REPORT INFORMATION
  Report Type: Spontaneous
  Country: US (occurrence: US)
  Receive Date: 20121213
  Receipt Date: 20130215
  Transmission Date: 20140127
  Serious: Yes (Hospitalization)
  Sender: FDA-Public Use
  Company Number: US-INCYTE CORPORATION-2012IN002529

PATIENT
  Age: 56 None
  Sex: Male

DRUGS (2)
  1. JAKAFI [Suspect]
     Dosage: 20 MG, BID
     Route: 048
     Dates: start: 20120926
  2. HYDREA [Concomitant]

REACTIONS (8)
  - Rectal haemorrhage [Recovered/Resolved]
  - Malaise [Unknown]
  - Syncope [Unknown]
  - Limb injury [Unknown]
  - Joint injury [Unknown]
  - Weight decreased [Unknown]
  - Fall [Not Recovered/Not Resolved]
  - Arthralgia [Not Recovered/Not Resolved]
